FAERS Safety Report 17029985 (Version 1)
Quarter: 2019Q4

REPORT INFORMATION
  Report Type: Spontaneous
  Country: FR (occurrence: FR)
  Receive Date: 20191114
  Receipt Date: 20191114
  Transmission Date: 20200122
  Serious: Yes (Hospitalization)
  Sender: FDA-Public Use
  Company Number: FR-AUROBINDO-AUR-APL-2019-072268

PATIENT
  Age: 72 Year
  Sex: Male
  Weight: 91 kg

DRUGS (2)
  1. APRANAX [Suspect]
     Active Substance: NAPROXEN
     Indication: TENDON PAIN
     Dosage: 1 DOSAGE FORM
     Route: 048
     Dates: end: 201907
  2. PARACETAMOL [Suspect]
     Active Substance: ACETAMINOPHEN
     Indication: TENDON PAIN
     Dosage: 1 GRAM
     Route: 048
     Dates: end: 20190814

REACTIONS (1)
  - Rash maculo-papular [Recovering/Resolving]

NARRATIVE: CASE EVENT DATE: 20190805
